FAERS Safety Report 9783179 (Version 1)
Quarter: 2013Q4

REPORT INFORMATION
  Report Type: Spontaneous
  Country: US (occurrence: None)
  Receive Date: 20131223
  Receipt Date: 20131223
  Transmission Date: 20140711
  Serious: Yes (Other)
  Sender: FDA-Public Use
  Company Number: EUS-2012-00008

PATIENT
  Age: 11 Year
  Sex: Male

DRUGS (5)
  1. ERWINASE [Suspect]
     Indication: ACUTE LYMPHOCYTIC LEUKAEMIA
     Route: 030
     Dates: start: 20110615, end: 20111007
  2. METHOTREXATE (METHOTREXATE) [Suspect]
     Route: 037
  3. DEXAMETHASONE (DEXAMETHASONE) [Suspect]
     Route: 048
  4. VINCRISTINE [Concomitant]
  5. DOXORUBICIN [Concomitant]

REACTIONS (6)
  - Hypersensitivity [None]
  - Nausea [None]
  - Vomiting [None]
  - Hepatic function abnormal [None]
  - Alanine aminotransferase increased [None]
  - Aspartate aminotransferase increased [None]
